FAERS Safety Report 4534387-6 (Version None)
Quarter: 2004Q4

REPORT INFORMATION
  Report Type: 
  Country: None (occurrence: None)
  Receive Date: 20041220
  Receipt Date: 20041220
  Transmission Date: 20050328
  Serious: Yes (Disabling, Other)
  Sender: FDA-Public Use
  Company Number: None

PATIENT
  Sex: Female
  Weight: 63.05 kg

DRUGS (1)
  1. EFFEXOR XR [Suspect]
     Dosage: 1X  DAILY BUCCAL
     Route: 002
     Dates: start: 20011020, end: 20040920

REACTIONS (6)
  - FATIGUE [None]
  - FEELING ABNORMAL [None]
  - IMPAIRED WORK ABILITY [None]
  - PAIN [None]
  - WEIGHT DECREASED [None]
  - WEIGHT LOSS POOR [None]
